FAERS Safety Report 5243838-3 (Version None)
Quarter: 2007Q1

REPORT INFORMATION
  Report Type: 
  Country: None (occurrence: None)
  Receive Date: 20070220
  Receipt Date: 20070220
  Transmission Date: 20070707
  Serious: No
  Sender: FDA-Public Use
  Company Number: None

PATIENT
  Age: 60 Year
  Sex: Female
  Weight: 74.3899 kg

DRUGS (11)
  1. XELODA [Suspect]
     Indication: BREAST CANCER
     Dosage: 825MG/M2BID14DAYS/ORAL
     Route: 048
     Dates: start: 20070102, end: 20070108
  2. PACLITAXEL [Suspect]
     Indication: BREAST CANCER
     Dosage: 260 MG/M2/Q 21 DAYS/IV
     Route: 042
     Dates: start: 20070102, end: 20070102
  3. HYDROXYCHLOROQUINE SULFATE [Concomitant]
  4. COZAAR [Concomitant]
  5. LUNESTA [Concomitant]
  6. PROCHLORPERAZINE [Concomitant]
  7. GABAPENTIN [Concomitant]
  8. PRANDIN [Concomitant]
  9. VICODIN [Concomitant]
  10. INSULIN [Concomitant]
  11. MINOSYNTHROID [Concomitant]

REACTIONS (7)
  - ABDOMINAL PAIN [None]
  - DIABETIC GASTROPATHY [None]
  - DIZZINESS [None]
  - NAUSEA [None]
  - ORAL INTAKE REDUCED [None]
  - ORTHOSTATIC HYPOTENSION [None]
  - RENAL DISORDER [None]
